FAERS Safety Report 21271865 (Version 1)
Quarter: 2022Q3

REPORT INFORMATION
  Report Type: Report from Study
  Country: CO (occurrence: CO)
  Receive Date: 20220830
  Receipt Date: 20220830
  Transmission Date: 20221026
  Serious: Yes (Life-Threatening, Hospitalization, Other)
  Sender: FDA-Public Use
  Company Number: CO-ABBVIE-22K-036-4521982-00

PATIENT
  Sex: Female
  Weight: 61 kg

DRUGS (2)
  1. ZEMPLAR [Suspect]
     Active Substance: PARICALCITOL
     Indication: Chronic kidney disease
     Route: 048
     Dates: start: 20180619
  2. ZEMPLAR [Suspect]
     Active Substance: PARICALCITOL
     Indication: Hyperparathyroidism secondary

REACTIONS (4)
  - Blindness [Recovering/Resolving]
  - Cataract [Recovering/Resolving]
  - Ischaemia [Recovering/Resolving]
  - Feeling of despair [Recovered/Resolved]

NARRATIVE: CASE EVENT DATE: 20220101
